FAERS Safety Report 10183716 (Version 1)
Quarter: 2014Q2

REPORT INFORMATION
  Report Type: Spontaneous
  Country: US (occurrence: US)
  Receive Date: 20140520
  Receipt Date: 20140520
  Transmission Date: 20141212
  Serious: No
  Sender: FDA-Public Use
  Company Number: US-ENDO PHARMACEUTICALS INC.-GILD20130020

PATIENT
  Age: 19 Year
  Sex: Female

DRUGS (5)
  1. GILDESS FE 1.5/30 [Suspect]
     Indication: ORAL CONTRACEPTION
     Dosage: 1.5/30
     Route: 048
     Dates: start: 2013
  2. GILDESS FE 1.5/30 [Suspect]
     Indication: DYSMENORRHOEA
  3. SYNTHROID [Concomitant]
     Indication: PRODUCT USED FOR UNKNOWN INDICATION
     Dosage: UNK
     Route: 065
     Dates: start: 2002
  4. JUNEL [Concomitant]
     Indication: ORAL CONTRACEPTION
     Dosage: UNK
     Route: 065
     Dates: end: 2013
  5. JUNEL [Concomitant]
     Indication: DYSMENORRHOEA

REACTIONS (2)
  - Lactose intolerance [Not Recovered/Not Resolved]
  - Condition aggravated [Not Recovered/Not Resolved]
